FAERS Safety Report 16881435 (Version 1)
Quarter: 2019Q4

REPORT INFORMATION
  Report Type: Spontaneous
  Country: US (occurrence: US)
  Receive Date: 20191003
  Receipt Date: 20191003
  Transmission Date: 20200122
  Serious: Yes (Other)
  Sender: FDA-Public Use
  Company Number: US-FRESENIUS KABI-FK201910778

PATIENT
  Age: 54 Year
  Sex: Female

DRUGS (6)
  1. ETANERCEPT [Suspect]
     Active Substance: ETANERCEPT
     Indication: RHEUMATOID ARTHRITIS
     Route: 065
     Dates: start: 2014
  2. INFLIXIMAB [Suspect]
     Active Substance: INFLIXIMAB
     Indication: RHEUMATOID ARTHRITIS
     Route: 065
     Dates: start: 2014
  3. INFLIXIMAB [Suspect]
     Active Substance: INFLIXIMAB
     Indication: SJOGREN^S SYNDROME
  4. METHOTREXATE (MANUFACTURER UNKNOWN) [Suspect]
     Active Substance: METHOTREXATE
     Indication: RHEUMATOID ARTHRITIS
     Route: 065
     Dates: start: 2014
  5. ETANERCEPT [Suspect]
     Active Substance: ETANERCEPT
     Indication: SJOGREN^S SYNDROME
  6. METHOTREXATE (MANUFACTURER UNKNOWN) [Suspect]
     Active Substance: METHOTREXATE
     Indication: SJOGREN^S SYNDROME

REACTIONS (1)
  - Epstein-Barr virus associated lymphoma [Recovering/Resolving]

NARRATIVE: CASE EVENT DATE: 2017
